FAERS Safety Report 22629351 (Version 1)
Quarter: 2023Q2

REPORT INFORMATION
  Report Type: Spontaneous
  Country: US (occurrence: US)
  Receive Date: 20230622
  Receipt Date: 20230622
  Transmission Date: 20230722
  Serious: Yes (Death, Other)
  Sender: FDA-Public Use
  Company Number: US-BAYER-2023A084592

PATIENT
  Age: 48 Year
  Sex: Male

DRUGS (5)
  1. ASPIRIN [Suspect]
     Active Substance: ASPIRIN
  2. GLIMEPIRIDE [Concomitant]
     Active Substance: GLIMEPIRIDE
  3. METFORMIN [Concomitant]
     Active Substance: METFORMIN HYDROCHLORIDE
  4. ROSUVASTATIN [Concomitant]
     Active Substance: ROSUVASTATIN
  5. FLUCONAZOLE [Concomitant]
     Active Substance: FLUCONAZOLE

REACTIONS (7)
  - Haemoptysis [Fatal]
  - Ventricular arrhythmia [None]
  - Pulmonary arterial pressure increased [None]
  - Pulmonary alveolar haemorrhage [Fatal]
  - Cardiac failure acute [Fatal]
  - Acute myocardial infarction [Fatal]
  - Vascular graft complication [Fatal]
